FAERS Safety Report 14936802 (Version 2)
Quarter: 2021Q1

REPORT INFORMATION
  Report Type: Spontaneous
  Country: US (occurrence: US)
  Receive Date: 20180525
  Receipt Date: 20210114
  Transmission Date: 20210419
  Serious: Yes (Other)
  Sender: FDA-Public Use
  Company Number: US-BEH-2018090870

PATIENT
  Age: 24 Year
  Sex: Female
  Weight: 68.03 kg

DRUGS (7)
  1. AUGMENTIN [Concomitant]
     Active Substance: AMOXICILLIN\CLAVULANATE POTASSIUM
  2. HIZENTRA [Suspect]
     Active Substance: HUMAN IMMUNOGLOBULIN G
     Indication: IMMUNODEFICIENCY COMMON VARIABLE
     Dosage: 10 GRAM, QW
     Route: 058
     Dates: start: 20180307
  3. ACETAMINOPHEN. [Concomitant]
     Active Substance: ACETAMINOPHEN
  4. DIPHENHYDRAMINE. [Concomitant]
     Active Substance: DIPHENHYDRAMINE
  5. EPINEPHRINE. [Concomitant]
     Active Substance: EPINEPHRINE
  6. LMX4 [Concomitant]
     Active Substance: LIDOCAINE
  7. KEPPRA [Concomitant]
     Active Substance: LEVETIRACETAM

REACTIONS (3)
  - Meningitis [Unknown]
  - Drug hypersensitivity [Unknown]
  - Spinal pain [Unknown]

NARRATIVE: CASE EVENT DATE: 201804
